FAERS Safety Report 8547945-9 (Version None)
Quarter: 2012Q3

REPORT INFORMATION
  Report Type: 
  Country: None (occurrence: None)
  Receive Date: 20120728
  Receipt Date: 20101116
  Transmission Date: 20120928
  Serious: Yes (Hospitalization)
  Sender: FDA-Public Use
  Company Number: US-ELI_LILLY_AND_COMPANY-US201011004397

PATIENT
  Sex: Male
  Weight: 62.132 kg

DRUGS (1)
  1. PRASUGREL HYDROCHLORIDE [Suspect]
     Dosage: UNK
     Dates: start: 20101021

REACTIONS (2)
  - ACUTE MYOCARDIAL INFARCTION [None]
  - CORONARY ARTERIAL STENT INSERTION [None]
